FAERS Safety Report 9546560 (Version 1)
Quarter: 2013Q3

REPORT INFORMATION
  Report Type: Spontaneous
  Country: FR (occurrence: FR)
  Receive Date: 20130923
  Receipt Date: 20130923
  Transmission Date: 20140515
  Serious: Yes (Hospitalization)
  Sender: FDA-Public Use
  Company Number: FR-PFIZER INC-2013267655

PATIENT
  Age: 38 Year
  Sex: Female

DRUGS (1)
  1. TRINORDIOL [Suspect]
     Dosage: (30-40-30 UG/50-75-125 UG) 1 DF 21 DAYS/28 DAYS
     Route: 048
     Dates: start: 2008, end: 20130603

REACTIONS (2)
  - Vertebral artery dissection [Recovered/Resolved]
  - Ischaemic stroke [Recovered/Resolved]
